FAERS Safety Report 9019370 (Version 1)
Quarter: 2013Q1

REPORT INFORMATION
  Report Type: Report from Study
  Country: IN (occurrence: IN)
  Receive Date: 20130118
  Receipt Date: 20130118
  Transmission Date: 20140127
  Serious: Yes (Disabling, Other)
  Sender: FDA-Public Use
  Company Number: IN-ALLERGAN-1300696US

PATIENT
  Sex: Male

DRUGS (1)
  1. DEXAMETHASONE [Suspect]
     Indication: MACULAR OEDEMA
     Dosage: UNK
     Dates: start: 20120518, end: 20120518

REACTIONS (1)
  - Hemiplegia [Recovering/Resolving]
